FAERS Safety Report 23390750 (Version 1)
Quarter: 2024Q1

REPORT INFORMATION
  Report Type: Spontaneous
  Country: CN (occurrence: CN)
  Receive Date: 20240111
  Receipt Date: 20240111
  Transmission Date: 20240410
  Serious: Yes (Other)
  Sender: FDA-Public Use
  Company Number: None

PATIENT
  Age: 25 Year
  Sex: Male
  Weight: 75 kg

DRUGS (1)
  1. OLANZAPINE [Suspect]
     Active Substance: OLANZAPINE
     Indication: Schizophrenia
     Dosage: 20MG,QD
     Route: 048
     Dates: start: 20231026, end: 20231120

REACTIONS (1)
  - Cholinergic syndrome [Recovered/Resolved]

NARRATIVE: CASE EVENT DATE: 20231120
